FAERS Safety Report 5136072-9 (Version None)
Quarter: 2006Q4

REPORT INFORMATION
  Report Type: 
  Country: None (occurrence: None)
  Receive Date: 20061027
  Receipt Date: 20061016
  Transmission Date: 20070319
  Serious: Yes (Disabling)
  Sender: FDA-Public Use
  Company Number: PHBS2006IT16246

PATIENT
  Age: 80 Year
  Sex: Female

DRUGS (2)
  1. ADRONAT [Suspect]
     Indication: PLASMACYTOSIS
     Dosage: 70 MG, QW
     Route: 048
     Dates: start: 20050424, end: 20060324
  2. ZOMETA [Suspect]
     Indication: PLASMACYTOSIS
     Dosage: 4 MG, QMO
     Route: 042
     Dates: start: 20041226, end: 20050324

REACTIONS (5)
  - ENTEROCOCCAL INFECTION [None]
  - FISTULA [None]
  - ORAL BACTERIAL INFECTION [None]
  - OSTEITIS [None]
  - OSTEONECROSIS [None]
